FAERS Safety Report 6340163-4 (Version None)
Quarter: 2009Q3

REPORT INFORMATION
  Report Type: 
  Country: None (occurrence: None)
  Receive Date: 20090903
  Receipt Date: 20090826
  Transmission Date: 20100115
  Serious: Yes (Other)
  Sender: FDA-Public Use
  Company Number: US-AMGEN-QUU361826

PATIENT
  Sex: Male

DRUGS (2)
  1. ENBREL [Suspect]
     Indication: JUVENILE ARTHRITIS
     Route: 058
     Dates: start: 20090313
  2. METHOTREXATE [Concomitant]
     Route: 058

REACTIONS (4)
  - ARTHRALGIA [None]
  - EYE DISCHARGE [None]
  - INJECTION SITE IRRITATION [None]
  - UVEITIS [None]
